FAERS Safety Report 8384401-5 (Version None)
Quarter: 2012Q2

REPORT INFORMATION
  Report Type: 
  Country: None (occurrence: None)
  Receive Date: 20120524
  Receipt Date: 20120515
  Transmission Date: 20120825
  Serious: Yes (Hospitalization)
  Sender: FDA-Public Use
  Company Number: US-GLAXOSMITHKLINE-A0929983A

PATIENT
  Age: 43 Year
  Sex: Male

DRUGS (4)
  1. TOPROL-XL [Concomitant]
  2. GLYBURIDE [Concomitant]
  3. AVANDIA [Suspect]
     Indication: DIABETES MELLITUS
     Dosage: 4MG TWICE PER DAY
     Route: 048
     Dates: start: 20010101, end: 20030901
  4. HYTRIN [Concomitant]

REACTIONS (3)
  - CARDIOMYOPATHY [None]
  - CARDIAC FAILURE CONGESTIVE [None]
  - PULMONARY OEDEMA [None]
